FAERS Safety Report 13129659 (Version 1)
Quarter: 2017Q1

REPORT INFORMATION
  Report Type: Spontaneous
  Country: FR (occurrence: FR)
  Receive Date: 20170119
  Receipt Date: 20170119
  Transmission Date: 20170428
  Serious: Yes (Hospitalization, Other)
  Sender: FDA-Public Use
  Company Number: FR-BRISTOL-MYERS SQUIBB COMPANY-BMS-2017-002148

PATIENT
  Age: 60 Year
  Sex: Male

DRUGS (1)
  1. OPDIVO [Suspect]
     Active Substance: NIVOLUMAB
     Indication: MALIGNANT MELANOMA
     Dosage: 270 MG, UNK
     Route: 042
     Dates: start: 20141009

REACTIONS (6)
  - Renal failure [Recovered/Resolved]
  - Hyperkalaemia [Recovered/Resolved]
  - Septic shock [Recovered/Resolved]
  - Erysipelas [Recovered/Resolved]
  - Renal tubular necrosis [Recovered/Resolved]
  - Adrenal insufficiency [Recovered/Resolved with Sequelae]

NARRATIVE: CASE EVENT DATE: 201602
